FAERS Safety Report 13777644 (Version 2)
Quarter: 2017Q3

REPORT INFORMATION
  Report Type: Report from Study
  Country: US (occurrence: US)
  Receive Date: 20170721
  Receipt Date: 20170803
  Transmission Date: 20171127
  Serious: Yes (Hospitalization)
  Sender: FDA-Public Use
  Company Number: PHHO2017US010602

PATIENT
  Age: 68 Year
  Sex: Male
  Weight: 87.5 kg

DRUGS (7)
  1. ZORTRESS [Suspect]
     Active Substance: EVEROLIMUS
     Dosage: 2.25 MG, BID
     Route: 048
     Dates: start: 20170712, end: 20170714
  2. ZORTRESS [Suspect]
     Active Substance: EVEROLIMUS
     Indication: LIVER TRANSPLANT
     Dosage: 1.5 MG, BID
     Route: 048
     Dates: start: 20170702, end: 20170711
  3. SULFAMETHOXAZOLE AND TRIMETHOPRIM [Concomitant]
     Active Substance: SULFAMETHOXAZOLE\TRIMETHOPRIM
     Indication: PROPHYLAXIS
     Dosage: SULFAMETHOXAZOLE 400 MG/TRIMETHOPRIM 80 MG, QD
     Route: 065
     Dates: start: 20170701
  4. ZORTRESS [Suspect]
     Active Substance: EVEROLIMUS
     Dosage: 2.25 MG, BID
     Route: 048
     Dates: start: 20170716
  5. ACYCLOVIR. [Concomitant]
     Active Substance: ACYCLOVIR
     Indication: PROPHYLAXIS
     Dosage: 400 MG, BID
     Route: 065
     Dates: start: 20170629
  6. TACROLIMUS. [Suspect]
     Active Substance: TACROLIMUS
     Indication: LIVER TRANSPLANT
     Dosage: 3 MG, BID
     Route: 048
     Dates: start: 20170630, end: 20170713
  7. TACROLIMUS. [Suspect]
     Active Substance: TACROLIMUS
     Dosage: 3 MG, BID
     Route: 048
     Dates: start: 20170716

REACTIONS (3)
  - Escherichia bacteraemia [Recovering/Resolving]
  - Subdiaphragmatic abscess [Not Recovered/Not Resolved]
  - Hepatic haematoma [Recovered/Resolved]

NARRATIVE: CASE EVENT DATE: 20170713
